FAERS Safety Report 24709784 (Version 1)
Quarter: 2024Q4

REPORT INFORMATION
  Report Type: Spontaneous
  Country: IT (occurrence: IT)
  Receive Date: 20241209
  Receipt Date: 20241209
  Transmission Date: 20250114
  Serious: Yes (Hospitalization, Other)
  Sender: AUROBINDO
  Company Number: IT-MINISAL02-1012602

PATIENT
  Age: 95 Year
  Sex: Female

DRUGS (1)
  1. HYDROCHLOROTHIAZIDE [Suspect]
     Active Substance: HYDROCHLOROTHIAZIDE
     Indication: Hypertension
     Dosage: 12.5 MILLIGRAM, ONCE A DAY (FOR YEARS)
     Route: 048
     Dates: start: 19700101, end: 20241120

REACTIONS (4)
  - Hypokalaemia [Unknown]
  - Blood sodium decreased [Unknown]
  - Hypochloraemia [Unknown]
  - Dehydration [Unknown]

NARRATIVE: CASE EVENT DATE: 20241114
